FAERS Safety Report 10049368 (Version 1)
Quarter: 2014Q2

REPORT INFORMATION
  Report Type: Spontaneous
  Country: US (occurrence: US)
  Receive Date: 20140401
  Receipt Date: 20140401
  Transmission Date: 20141212
  Serious: Yes (Hospitalization)
  Sender: FDA-Public Use
  Company Number: US-BRISTOL-MYERS SQUIBB COMPANY-20557096

PATIENT
  Sex: Female

DRUGS (1)
  1. LYSODREN [Suspect]
     Indication: ADRENAL GLAND CANCER

REACTIONS (4)
  - Gastrointestinal infection [Unknown]
  - Diarrhoea [Unknown]
  - Disturbance in attention [Unknown]
  - Amnesia [Unknown]
